FAERS Safety Report 24546967 (Version 2)
Quarter: 2024Q4

REPORT INFORMATION
  Report Type: Spontaneous
  Country: JP (occurrence: JP)
  Receive Date: 20241025
  Receipt Date: 20241118
  Transmission Date: 20250114
  Serious: Yes (Death, Other)
  Sender: TAKEDA
  Company Number: JP-TAKEDA-2024TJP015427

PATIENT
  Age: 5 Decade
  Sex: Male

DRUGS (16)
  1. CUVITRU [Suspect]
     Active Substance: HUMAN IMMUNOGLOBULIN G
     Indication: Bruton^s agammaglobulinaemia
     Dosage: 10 GRAM, 1/WEEK
     Dates: start: 20240627, end: 20241111
  2. PREDONINE [Concomitant]
     Active Substance: PREDNISOLONE
     Dosage: UNK
  3. AZATHIOPRINE [Concomitant]
     Active Substance: AZATHIOPRINE
     Dosage: UNK
  4. CRESEMBA [Concomitant]
     Active Substance: ISAVUCONAZONIUM SULFATE
     Dosage: 2 DOSAGE FORM, QD
     Dates: start: 20241009
  5. CARBOCYSTEINE [Concomitant]
     Active Substance: CARBOCYSTEINE
     Dosage: 2 DOSAGE FORM, BID
     Dates: start: 20241009
  6. LACTULOSE [Concomitant]
     Active Substance: LACTULOSE
     Dosage: 10 MILLILITER, TID
     Dates: start: 20241009
  7. FUROSEMIDE [Concomitant]
     Active Substance: FUROSEMIDE
     Dosage: 1 DOSAGE FORM, QD
     Dates: start: 20241009
  8. SPIRONOLACTONE [Concomitant]
     Active Substance: SPIRONOLACTONE
     Dosage: 2 DOSAGE FORM, QD
     Dates: start: 20241009
  9. VONOPRAZAN FUMARATE [Concomitant]
     Active Substance: VONOPRAZAN FUMARATE
     Dosage: 1 DOSAGE FORM, QD
     Dates: start: 20241009
  10. URSODIOL [Concomitant]
     Active Substance: URSODIOL
     Dosage: 1 DOSAGE FORM, TID
     Dates: start: 20241009
  11. SULFAMETHOXAZOLE\TRIMETHOPRIM [Concomitant]
     Active Substance: SULFAMETHOXAZOLE\TRIMETHOPRIM
     Dosage: 1 DOSAGE FORM, 3/WEEK
     Dates: start: 20241009
  12. PREDNISOLONE [Concomitant]
     Active Substance: PREDNISOLONE
     Dosage: 8 DOSAGE FORM, QD
     Dates: start: 20241009
  13. IMURAN [Concomitant]
     Active Substance: AZATHIOPRINE
     Dosage: 2 DOSAGE FORM, QD
     Dates: start: 20241009
  14. LOXOPROFEN [Concomitant]
     Active Substance: LOXOPROFEN
     Dosage: 1 DOSAGE FORM
  15. TRELEGY ELLIPTA [Concomitant]
     Active Substance: FLUTICASONE FUROATE\UMECLIDINIUM BROMIDE\VILANTEROL TRIFENATATE
     Dosage: UNK UNK, QD
     Dates: start: 20241009
  16. MIYA-BM [Concomitant]
     Active Substance: CLOSTRIDIUM BUTYRICUM SPORES STRAIN M-55
     Dosage: 1 GRAM, TID
     Dates: start: 20241009

REACTIONS (2)
  - Pseudomonal sepsis [Fatal]
  - COVID-19 [Fatal]
